FAERS Safety Report 10006441 (Version 1)
Quarter: 2014Q1

REPORT INFORMATION
  Report Type: Spontaneous
  Country: US (occurrence: None)
  Receive Date: 20140311
  Receipt Date: 20140311
  Transmission Date: 20141002
  Serious: Yes (Disabling, Other)
  Sender: FDA-Public Use
  Company Number: 1403-0449

PATIENT
  Sex: 0

DRUGS (2)
  1. EYLEA (AFLIBERCEPT) (INJECTION) (AFLIBERCEPT) [Suspect]
     Indication: AGE-RELATED MACULAR DEGENERATION
     Dosage: 2 MG INTRAVITREAL
  2. TRIESENCE (TRIAMCINOLONE ACETONIDE) (INJECTION) [Concomitant]

REACTIONS (3)
  - Pseudoendophthalmitis [None]
  - Uveitis [None]
  - Blindness transient [None]
